FAERS Safety Report 7937130-3 (Version None)
Quarter: 2011Q4

REPORT INFORMATION
  Report Type: 
  Country: None (occurrence: None)
  Receive Date: 20111123
  Receipt Date: 20111114
  Transmission Date: 20120403
  Serious: Yes (Hospitalization, Disabling)
  Sender: FDA-Public Use
  Company Number: US-BAYER-2011-032106

PATIENT
  Age: 22 Year
  Sex: Female
  Weight: 64 kg

DRUGS (6)
  1. SUMATRIPTAN [Concomitant]
     Dosage: 50 MG, UNK
     Route: 048
     Dates: start: 20090416
  2. XANAX [Concomitant]
  3. YAZ [Suspect]
     Indication: CONTRACEPTION
     Dosage: UNK
     Dates: start: 20090401, end: 20090801
  4. METRONIDAZOLE [Concomitant]
     Dosage: 500 MG, UNK
     Route: 048
     Dates: start: 20081013
  5. FEXOFENADINE [Concomitant]
     Dosage: 180 MG, UNK
     Route: 048
     Dates: start: 20070830, end: 20080319
  6. CLINDAMYCIN [Concomitant]
     Indication: CELLULITIS
     Dosage: 300 MG, UNK
     Route: 048
     Dates: start: 20090817

REACTIONS (8)
  - PULMONARY EMBOLISM [None]
  - HYPOAESTHESIA [None]
  - DEEP VEIN THROMBOSIS [None]
  - DYSPNOEA [None]
  - OEDEMA PERIPHERAL [None]
  - CAPILLARY FRAGILITY [None]
  - ERYTHEMA [None]
  - INJURY [None]
